FAERS Safety Report 14712573 (Version 9)
Quarter: 2018Q3

REPORT INFORMATION
  Report Type: Report from Study
  Country: None (occurrence: ES)
  Receive Date: 20180404
  Receipt Date: 20180705
  Transmission Date: 20181010
  Serious: Yes (Hospitalization, Other)
  Sender: FDA-Public Use
  Company Number: ES-ABBVIE-18K-144-2309979-00

PATIENT
  Age: 64 Year
  Sex: Male

DRUGS (3)
  1. DUODOPA [Suspect]
     Active Substance: CARBIDOPA\LEVODOPA
     Dosage: INCREASE CONTINUOUS  DOSE OF DUODOPA OF MORNING PUMP ON 0.2ML/H.
     Route: 050
  2. DUODOPA [Suspect]
     Active Substance: CARBIDOPA\LEVODOPA
     Indication: PARKINSON^S DISEASE
     Route: 050
     Dates: start: 20160511
  3. DUODOPA [Suspect]
     Active Substance: CARBIDOPA\LEVODOPA
     Dosage: ADMINISTERED THREE EXTRA DOSES
     Route: 050

REACTIONS (6)
  - Freezing phenomenon [Recovered/Resolved]
  - Ischaemic stroke [Recovered/Resolved]
  - Mobility decreased [Not Recovered/Not Resolved]
  - Ultrasound Doppler abnormal [Unknown]
  - Freezing phenomenon [Recovered/Resolved]
  - Dyskinesia [Recovered/Resolved]

NARRATIVE: CASE EVENT DATE: 2018
